FAERS Safety Report 20105196 (Version 1)
Quarter: 2021Q4

REPORT INFORMATION
  Report Type: Report from Study
  Country: CA (occurrence: CA)
  Receive Date: 20211124
  Receipt Date: 20211124
  Transmission Date: 20220303
  Serious: Yes (Other)
  Sender: FDA-Public Use
  Company Number: CA-ABBVIE-21K-028-4172452-00

PATIENT
  Sex: Female

DRUGS (1)
  1. HUMIRA [Suspect]
     Active Substance: ADALIMUMAB
     Indication: Crohn^s disease
     Route: 058
     Dates: start: 20120621

REACTIONS (6)
  - Obstruction [Unknown]
  - Inflammation [Unknown]
  - Discomfort [Unknown]
  - Muscle spasms [Unknown]
  - Back pain [Unknown]
  - Crohn^s disease [Unknown]
